FAERS Safety Report 8505209-3 (Version None)
Quarter: 2012Q3

REPORT INFORMATION
  Report Type: 
  Country: None (occurrence: None)
  Receive Date: 20120712
  Receipt Date: 20120703
  Transmission Date: 20120928
  Serious: Yes (Death)
  Sender: FDA-Public Use
  Company Number: DE-ASTELLAS-2012US006097

PATIENT
  Age: 60 Year
  Sex: Male

DRUGS (1)
  1. TARCEVA [Suspect]
     Indication: PANCREATIC CARCINOMA
     Dosage: 150 MG, UID/QD
     Route: 048

REACTIONS (3)
  - INCORRECT DOSE ADMINISTERED [None]
  - DEATH [None]
  - RASH [None]
